FAERS Safety Report 8022387-3 (Version None)
Quarter: 2012Q1

REPORT INFORMATION
  Report Type: 
  Country: None (occurrence: None)
  Receive Date: 20120104
  Receipt Date: 20111128
  Transmission Date: 20120608
  Serious: No
  Sender: FDA-Public Use
  Company Number: US-MYLANLABS-2011S1021834

PATIENT
  Age: 5 Decade
  Sex: Female

DRUGS (4)
  1. CALCIUM ACETATE [Concomitant]
  2. CANASA [Concomitant]
  3. MULTI-VITAMIN [Concomitant]
  4. BALSALAZIDE DISODIUM [Suspect]
     Indication: COLITIS ULCERATIVE
     Route: 048
     Dates: start: 20090101

REACTIONS (4)
  - COLITIS ULCERATIVE [None]
  - DRUG INEFFECTIVE [None]
  - BOWEL MOVEMENT IRREGULARITY [None]
  - ASTHENIA [None]
